FAERS Safety Report 10958834 (Version 2)
Quarter: 2015Q2

REPORT INFORMATION
  Report Type: Spontaneous
  Country: US (occurrence: US)
  Receive Date: 20150327
  Receipt Date: 20150524
  Transmission Date: 20150821
  Serious: No
  Sender: FDA-Public Use
  Company Number: US-JNJFOC-20140826838

PATIENT
  Sex: Female
  Weight: 67.13 kg

DRUGS (4)
  1. DURAGESIC [Suspect]
     Active Substance: FENTANYL
     Indication: NERVE INJURY
     Route: 062
     Dates: start: 2010
  2. DURAGESIC [Suspect]
     Active Substance: FENTANYL
     Indication: NERVE INJURY
     Route: 062
     Dates: start: 2009
  3. DURAGESIC [Suspect]
     Active Substance: FENTANYL
     Indication: NERVOUS SYSTEM DISORDER
     Route: 062
     Dates: start: 2010
  4. DURAGESIC [Suspect]
     Active Substance: FENTANYL
     Indication: NERVOUS SYSTEM DISORDER
     Route: 062
     Dates: start: 2009

REACTIONS (5)
  - Application site irritation [Recovered/Resolved]
  - Product quality issue [Unknown]
  - Application site erythema [Recovered/Resolved]
  - Pain [Not Recovered/Not Resolved]
  - Application site vesicles [Recovered/Resolved]
